FAERS Safety Report 4965002-5 (Version None)
Quarter: 2006Q2

REPORT INFORMATION
  Report Type: 
  Country: None (occurrence: None)
  Receive Date: 20060403
  Receipt Date: 20060325
  Transmission Date: 20061013
  Serious: Yes (Other)
  Sender: FDA-Public Use
  Company Number: BR-2006-006990

PATIENT
  Age: 27 Year
  Sex: Female

DRUGS (1)
  1. MIRENA [Suspect]
     Dosage: 20 UG/DAY, CONT, INTRAMUSCULAR
     Route: 030
     Dates: start: 20020101

REACTIONS (2)
  - EMOTIONAL DISTRESS [None]
  - HYPERTENSIVE CRISIS [None]
